FAERS Safety Report 7892323-9 (Version None)
Quarter: 2011Q4

REPORT INFORMATION
  Report Type: 
  Country: None (occurrence: None)
  Receive Date: 20111101
  Receipt Date: 20111021
  Transmission Date: 20120403
  Serious: Yes (Hospitalization)
  Sender: FDA-Public Use
  Company Number: 2011GW000582

PATIENT
  Age: 75 Year
  Sex: Female

DRUGS (2)
  1. MINITRAN [Suspect]
     Indication: ANGINA PECTORIS
     Dosage: 0.4  MG;HS;TDER ; 0.6 MG;HS;TDER
     Route: 062
  2. MINITRAN [Suspect]
     Indication: MYOCARDIAL INFARCTION
     Dosage: 0.4  MG;HS;TDER ; 0.6 MG;HS;TDER
     Route: 062

REACTIONS (4)
  - SEPSIS [None]
  - SKIN GRAFT [None]
  - SKIN ULCER [None]
  - SUBCUTANEOUS ABSCESS [None]
